FAERS Safety Report 9070815 (Version 1)
Quarter: 2013Q1

REPORT INFORMATION
  Report Type: Report from Study
  Country: US (occurrence: US)
  Receive Date: 20130129
  Receipt Date: 20130129
  Transmission Date: 20140127
  Serious: No
  Sender: FDA-Public Use
  Company Number: US-ABBOTT-12P-163-0932671-00

PATIENT
  Age: 40 None
  Sex: Female

DRUGS (3)
  1. HUMIRA 40 MG/0.8 ML PEN [Suspect]
     Indication: CROHN^S DISEASE
     Dosage: LOADING DOSE
     Dates: start: 20120503
  2. PURINETHOL [Concomitant]
     Indication: CROHN^S DISEASE
     Dosage: 2 TABS DAILY
  3. KLONOPIN [Concomitant]
     Indication: INSOMNIA
     Dosage: 1 TAB DAILY

REACTIONS (4)
  - Injection site bruising [Not Recovered/Not Resolved]
  - Injury associated with device [Unknown]
  - Incorrect dose administered [Unknown]
  - Device malfunction [Unknown]
